FAERS Safety Report 12642682 (Version 4)
Quarter: 2017Q4

REPORT INFORMATION
  Report Type: Report from Study
  Country: FR (occurrence: FR)
  Receive Date: 20160810
  Receipt Date: 20171030
  Transmission Date: 20180320
  Serious: Yes (Hospitalization)
  Sender: FDA-Public Use
  Company Number: FR-ROCHE-1811211

PATIENT
  Age: 70 Year
  Sex: Male
  Weight: 58 kg

DRUGS (22)
  1. CARBOPLATIN. [Concomitant]
     Active Substance: CARBOPLATIN
     Route: 065
     Dates: start: 20150715
  2. CARBOPLATIN. [Concomitant]
     Active Substance: CARBOPLATIN
     Route: 065
     Dates: start: 20150805
  3. DOCETAXEL. [Concomitant]
     Active Substance: DOCETAXEL
     Route: 065
     Dates: start: 20151209
  4. DOCETAXEL. [Concomitant]
     Active Substance: DOCETAXEL
     Route: 065
     Dates: start: 20160302
  5. CARBOPLATIN. [Concomitant]
     Active Substance: CARBOPLATIN
     Route: 065
     Dates: start: 20150825
  6. PEMETREXED. [Concomitant]
     Active Substance: PEMETREXED
     Route: 065
     Dates: start: 20151028
  7. OXYCONTIN [Concomitant]
     Active Substance: OXYCODONE HYDROCHLORIDE
     Indication: PAIN
     Route: 048
     Dates: start: 20160109
  8. BEVACIZUMAB. [Suspect]
     Active Substance: BEVACIZUMAB
     Indication: NON-SMALL CELL LUNG CANCER
     Route: 065
     Dates: start: 20150825, end: 20151118
  9. OXYNORM [Concomitant]
     Active Substance: OXYCODONE HYDROCHLORIDE
     Indication: PAIN
     Route: 048
     Dates: start: 20160109
  10. INEXIUM [Concomitant]
     Active Substance: ESOMEPRAZOLE
     Indication: ABDOMINAL PAIN UPPER
     Route: 048
     Dates: start: 20151028
  11. DOCETAXEL. [Concomitant]
     Active Substance: DOCETAXEL
     Route: 065
     Dates: start: 20151229
  12. DOCETAXEL. [Concomitant]
     Active Substance: DOCETAXEL
     Route: 065
     Dates: start: 20160210
  13. DOCETAXEL. [Concomitant]
     Active Substance: DOCETAXEL
     Route: 065
     Dates: start: 20160120
  14. CARBOPLATIN. [Concomitant]
     Active Substance: CARBOPLATIN
     Route: 065
     Dates: start: 20150624
  15. PEMETREXED. [Concomitant]
     Active Substance: PEMETREXED
     Route: 065
     Dates: start: 20151007
  16. PEMETREXED. [Concomitant]
     Active Substance: PEMETREXED
     Route: 065
     Dates: start: 20151118
  17. PEMETREXED. [Concomitant]
     Active Substance: PEMETREXED
     Route: 065
     Dates: start: 20150715
  18. PEMETREXED. [Concomitant]
     Active Substance: PEMETREXED
     Route: 065
     Dates: start: 20150805
  19. DOCETAXEL. [Concomitant]
     Active Substance: DOCETAXEL
     Route: 065
     Dates: start: 20160323
  20. PEMETREXED. [Concomitant]
     Active Substance: PEMETREXED
     Route: 065
     Dates: start: 20150916
  21. PEMETREXED. [Concomitant]
     Active Substance: PEMETREXED
     Route: 065
     Dates: start: 20150624
  22. PEMETREXED. [Concomitant]
     Active Substance: PEMETREXED
     Route: 065
     Dates: start: 20150825

REACTIONS (1)
  - Bile duct stenosis [Not Recovered/Not Resolved]

NARRATIVE: CASE EVENT DATE: 20160526
